FAERS Safety Report 9148732 (Version 1)
Quarter: 2013Q1

REPORT INFORMATION
  Report Type: Spontaneous
  Country: US (occurrence: None)
  Receive Date: 20130214
  Receipt Date: 20130214
  Transmission Date: 20140127
  Serious: Yes (Death)
  Sender: FDA-Public Use
  Company Number: 2013HINLIT0011

PATIENT
  Age: 25 Year
  Sex: Male

DRUGS (5)
  1. ZIDOVUDINE [Suspect]
     Indication: ANTIRETROVIRAL THERAPY
  2. LAMIVUDINE [Suspect]
     Indication: ANTIRETROVIRAL THERAPY
  3. EFAVIRENZ [Suspect]
     Indication: ANTIRETROVIRAL THERAPY
  4. TENOFOVIR [Suspect]
     Indication: ANTIRETROVIRAL THERAPY
  5. NEVIRAPINE [Suspect]
     Indication: ANTIRETROVIRAL THERAPY

REACTIONS (1)
  - Vanishing bile duct syndrome [None]
